FAERS Safety Report 11791446 (Version 1)
Quarter: 2015Q4

REPORT INFORMATION
  Report Type: Report from Study
  Country: JP (occurrence: JP)
  Receive Date: 20151201
  Receipt Date: 20151201
  Transmission Date: 20160305
  Serious: Yes (Hospitalization)
  Sender: FDA-Public Use
  Company Number: JP-BAYER-2015-472916

PATIENT
  Age: 73 Year
  Sex: Male

DRUGS (1)
  1. REGORAFENIB [Suspect]
     Active Substance: REGORAFENIB
     Indication: COLORECTAL CANCER
     Dosage: 160 MG, QD
     Route: 048
     Dates: start: 20151105, end: 20151118

REACTIONS (3)
  - Dehydration [None]
  - Pyrexia [None]
  - Liver function test abnormal [None]

NARRATIVE: CASE EVENT DATE: 20151118
